FAERS Safety Report 15735398 (Version 1)
Quarter: 2018Q4

REPORT INFORMATION
  Report Type: Spontaneous
  Country: JP (occurrence: JP)
  Receive Date: 20181218
  Receipt Date: 20181218
  Transmission Date: 20190205
  Serious: Yes (Other)
  Sender: FDA-Public Use
  Company Number: JP-PFIZER INC-2018512749

PATIENT
  Age: 19 Month
  Sex: Male

DRUGS (3)
  1. GABAPENTIN. [Suspect]
     Active Substance: GABAPENTIN
     Indication: HYPERTONIA
     Dosage: 15 MG/KG, DAILY
  2. GABAPENTIN. [Suspect]
     Active Substance: GABAPENTIN
     Dosage: 50 MG/KG, DAILY
  3. LEVETIRACETAM. [Concomitant]
     Active Substance: LEVETIRACETAM
     Indication: PROPHYLAXIS
     Dosage: 50 MG/KG, DAILY
     Route: 048

REACTIONS (2)
  - Acute kidney injury [Recovering/Resolving]
  - Product use issue [Unknown]
